FAERS Safety Report 5993833-1 (Version None)
Quarter: 2008Q4

REPORT INFORMATION
  Report Type: 
  Country: None (occurrence: None)
  Receive Date: 20081212
  Receipt Date: 20081003
  Transmission Date: 20090506
  Serious: No
  Sender: FDA-Public Use
  Company Number: PR-ABBOTT-08P-131-0480003-00

PATIENT
  Sex: Female

DRUGS (13)
  1. HUMIRA [Suspect]
     Indication: RHEUMATOID ARTHRITIS
     Route: 058
     Dates: start: 20070901, end: 20080501
  2. HUMIRA [Suspect]
     Route: 058
     Dates: start: 20080801, end: 20080901
  3. METHOTREXATE [Concomitant]
     Indication: RHEUMATOID ARTHRITIS
     Dosage: 2.5 MG X 6 TABLETS
     Route: 048
  4. FOLIC ACID [Concomitant]
     Indication: RHEUMATOID ARTHRITIS
     Route: 048
  5. PROVENTYL SOLUTION [Concomitant]
     Indication: ASTHMA
     Dosage: NEBULIZER
  6. MOMETASONE FUROATE [Concomitant]
     Indication: ASTHMA
     Dosage: MDI
     Route: 055
  7. PROVENTYL MDI [Concomitant]
     Indication: ASTHMA
     Dosage: MDI
     Route: 055
  8. LIOTHYRONINE SODIUM [Concomitant]
     Indication: AUTOIMMUNE THYROIDITIS
     Route: 048
  9. TOPIRAMATE [Concomitant]
     Indication: AUTOIMMUNE THYROIDITIS
     Route: 048
  10. HYZAAR [Concomitant]
     Indication: HYPERTENSION
     Dosage: 100MG/25MG
     Route: 048
  11. DYAZIDE [Concomitant]
     Indication: HYPERTENSION
     Route: 048
  12. DULOXETINE HYDROCHLORIDE [Concomitant]
     Indication: DEPRESSION
     Route: 048
  13. DULOXETINE HYDROCHLORIDE [Concomitant]
     Indication: FIBROMYALGIA

REACTIONS (3)
  - ASTHMA [None]
  - HYPERSENSITIVITY [None]
  - PYREXIA [None]
